FAERS Safety Report 25218407 (Version 2)
Quarter: 2025Q2

REPORT INFORMATION
  Report Type: Spontaneous
  Country: US (occurrence: US)
  Receive Date: 20250421
  Receipt Date: 20250428
  Transmission Date: 20250716
  Serious: No
  Sender: ROCHE
  Company Number: US-ROCHE-10000254505

PATIENT

DRUGS (1)
  1. BEVACIZUMAB [Suspect]
     Active Substance: BEVACIZUMAB
     Indication: Colorectal cancer stage IV
     Route: 065
     Dates: start: 202301

REACTIONS (2)
  - Pulmonary mass [Unknown]
  - Disease progression [Unknown]

NARRATIVE: CASE EVENT DATE: 20250101
